FAERS Safety Report 6608340-2 (Version None)
Quarter: 2010Q1

REPORT INFORMATION
  Report Type: 
  Country: None (occurrence: None)
  Receive Date: 20100301
  Receipt Date: 20100217
  Transmission Date: 20100710
  Serious: Yes (Hospitalization, Other)
  Sender: FDA-Public Use
  Company Number: NL-ELI_LILLY_AND_COMPANY-NL201002007010

PATIENT
  Sex: Male
  Weight: 130 kg

DRUGS (6)
  1. BYETTA [Suspect]
     Indication: DIABETES MELLITUS
     Dosage: 10 UG, 2/D
     Route: 058
  2. GLIMEPIRIDE SANDOZ [Concomitant]
     Dosage: 6 MG, UNKNOWN
     Route: 065
  3. LAMOTRIGINE PCH [Concomitant]
     Dosage: 100 MG, 3/D
     Route: 065
  4. AMLODIPINE [Concomitant]
     Dosage: 5 MG, DAILY (1/D)
     Route: 065
  5. LESCOL XL [Concomitant]
     Dosage: 80 MG, DAILY (1/D)
     Route: 065
  6. CODIOVAN [Concomitant]
     Dosage: 1 D/F (160MG / 12.5MG), DAILY (1/D)
     Route: 065

REACTIONS (8)
  - CONSTIPATION [None]
  - DUODENAL ULCER [None]
  - DYSGEUSIA [None]
  - FEELING ABNORMAL [None]
  - GASTRIC ULCER [None]
  - GASTROINTESTINAL HAEMORRHAGE [None]
  - HELICOBACTER TEST POSITIVE [None]
  - INSOMNIA [None]
